FAERS Safety Report 5963457-0 (Version None)
Quarter: 2008Q4

REPORT INFORMATION
  Report Type: 
  Country: None (occurrence: None)
  Receive Date: 20081124
  Receipt Date: 20081111
  Transmission Date: 20090506
  Serious: Yes (Disabling, Other)
  Sender: FDA-Public Use
  Company Number: US-CELGENEUS-163-21880-08071761

PATIENT
  Sex: Male
  Weight: 70.37 kg

DRUGS (6)
  1. REVLIMID [Suspect]
     Indication: MYELODYSPLASTIC SYNDROME
     Route: 048
     Dates: start: 20080908, end: 20081002
  2. REVLIMID [Suspect]
     Route: 048
     Dates: start: 20080827, end: 20080901
  3. REVLIMID [Suspect]
     Route: 048
     Dates: start: 20080729, end: 20080801
  4. REVLIMID [Suspect]
     Route: 048
     Dates: start: 20080618, end: 20080722
  5. PROCRIT [Concomitant]
     Indication: DRUG USE FOR UNKNOWN INDICATION
     Dosage: 40000
     Route: 065
  6. ASPIRIN [Concomitant]
     Indication: DRUG USE FOR UNKNOWN INDICATION
     Route: 065

REACTIONS (2)
  - DERMATITIS [None]
  - NIGHTMARE [None]
